FAERS Safety Report 24279734 (Version 3)
Quarter: 2024Q4

REPORT INFORMATION
  Report Type: Spontaneous
  Country: EG (occurrence: EG)
  Receive Date: 20240904
  Receipt Date: 20241016
  Transmission Date: 20250115
  Serious: Yes (Hospitalization, Other)
  Sender: NOVO NORDISK
  Company Number: EG-NOVOPROD-1274205

PATIENT
  Age: 79 Month
  Sex: Male
  Weight: 21 kg

DRUGS (5)
  1. LANTUS [Concomitant]
     Active Substance: INSULIN GLARGINE
     Indication: Type 1 diabetes mellitus
     Dosage: 6 IU, QD (2 IU/MORN. AND 4 IU/NIGHT)
     Route: 058
     Dates: start: 201811
  2. NOVORAPID [Suspect]
     Active Substance: INSULIN ASPART
     Dosage: BG LEVEL REACHES 400MG SHE INCREASE 2 IU
     Route: 058
  3. NOVORAPID [Suspect]
     Active Substance: INSULIN ASPART
     Dosage: REUSED AGAIN (ABOUT 1 MONTH AGO)
     Route: 058
  4. NOVORAPID [Suspect]
     Active Substance: INSULIN ASPART
     Indication: Type 1 diabetes mellitus
     Dosage: 2 IU/EACH MAIN MEAL
     Route: 058
     Dates: start: 20190121, end: 2021
  5. NOVORAPID [Suspect]
     Active Substance: INSULIN ASPART
     Dosage: BG LEVEL REACHES 300 MG/DL SHE INCREASE 1.5 UNITS
     Route: 058

REACTIONS (6)
  - Cerebrovascular accident [Recovered/Resolved]
  - Cardiac arrest [Recovered/Resolved]
  - Epilepsy [Unknown]
  - Diabetes mellitus inadequate control [Unknown]
  - Blood gases abnormal [Unknown]
  - Hyperglycaemia [Unknown]
